FAERS Safety Report 7549256-7 (Version None)
Quarter: 2011Q2

REPORT INFORMATION
  Report Type: 
  Country: None (occurrence: None)
  Receive Date: 20110615
  Receipt Date: 20110612
  Transmission Date: 20111010
  Serious: Yes (Death)
  Sender: FDA-Public Use
  Company Number: PHHY2011CZ51547

PATIENT

DRUGS (3)
  1. FENTANYL [Concomitant]
     Dates: start: 20050831
  2. ZOMETA [Suspect]
     Indication: METASTASES TO BONE
     Dates: start: 20050831
  3. ANODYNE [Concomitant]

REACTIONS (1)
  - DEATH [None]
